FAERS Safety Report 23746422 (Version 2)
Quarter: 2024Q2

REPORT INFORMATION
  Report Type: Report from Study
  Country: JP (occurrence: JP)
  Receive Date: 20240416
  Receipt Date: 20240509
  Transmission Date: 20240716
  Serious: Yes (Death, Hospitalization, Other)
  Sender: FDA-Public Use
  Company Number: JP-INSMED, INC.-2024-01446-JP

PATIENT

DRUGS (1)
  1. ARIKAYCE [Suspect]
     Active Substance: AMIKACIN
     Indication: Mycobacterium avium complex infection
     Dosage: UNK UNK
     Route: 055
     Dates: start: 20210929

REACTIONS (2)
  - Respiratory failure [Fatal]
  - Mycobacterium avium complex infection [Unknown]

NARRATIVE: CASE EVENT DATE: 20210101
